FAERS Safety Report 6403125-4 (Version None)
Quarter: 2009Q4

REPORT INFORMATION
  Report Type: 
  Country: None (occurrence: None)
  Receive Date: 20091016
  Receipt Date: 20091008
  Transmission Date: 20100525
  Serious: Yes (Death, Other)
  Sender: FDA-Public Use
  Company Number: JP-JNJFOC-20091004802

PATIENT
  Sex: Male

DRUGS (23)
  1. DUROTEP MT [Suspect]
     Route: 062
     Dates: start: 20090609
  2. DUROTEP MT [Suspect]
     Route: 062
     Dates: start: 20090609
  3. DUROTEP MT [Suspect]
     Route: 062
     Dates: start: 20090609
  4. DUROTEP MT [Suspect]
     Route: 062
     Dates: start: 20090609
  5. DUROTEP MT [Suspect]
     Indication: CANCER PAIN
     Route: 062
     Dates: start: 20090609
  6. MORPHINE HYDROCHLORIDE [Suspect]
     Route: 054
  7. MORPHINE HYDROCHLORIDE [Suspect]
     Route: 054
  8. MORPHINE HYDROCHLORIDE [Suspect]
     Route: 054
  9. MORPHINE HYDROCHLORIDE [Suspect]
     Route: 054
  10. MORPHINE HYDROCHLORIDE [Suspect]
     Indication: CANCER PAIN
     Route: 054
  11. ROPION [Concomitant]
     Indication: ANALGESIC THERAPY
     Route: 042
  12. FULCALIQ 1 [Concomitant]
     Route: 042
  13. BFLUID [Concomitant]
     Route: 042
  14. GASTER [Concomitant]
     Indication: GASTRITIS
     Route: 042
  15. NOVAMIN [Concomitant]
     Indication: NAUSEA
     Route: 042
  16. GLYCEOL [Concomitant]
     Route: 042
  17. FULCALIQ 2 [Concomitant]
     Route: 042
  18. RINDERON [Concomitant]
     Route: 042
  19. RINDERON [Concomitant]
     Route: 042
  20. RINDERON [Concomitant]
     Route: 042
  21. RINDERON [Concomitant]
     Route: 042
  22. MODACIN [Concomitant]
     Route: 042
  23. PHYSIO [Concomitant]
     Route: 042

REACTIONS (7)
  - ASPARTATE AMINOTRANSFERASE INCREASED [None]
  - BLOOD ALKALINE PHOSPHATASE INCREASED [None]
  - BLOOD POTASSIUM DECREASED [None]
  - DELIRIUM [None]
  - HEAD AND NECK CANCER [None]
  - NAUSEA [None]
  - SOMNOLENCE [None]
